FAERS Safety Report 19548488 (Version 1)
Quarter: 2021Q3

REPORT INFORMATION
  Report Type: Spontaneous
  Country: IN (occurrence: IN)
  Receive Date: 20210715
  Receipt Date: 20210715
  Transmission Date: 20211014
  Serious: Yes (Other)
  Sender: FDA-Public Use
  Company Number: IN-SHILPA MEDICARE LIMITED-SML-IN-2021-00881

PATIENT
  Age: 49 Year
  Sex: Male

DRUGS (3)
  1. IMATINIB, UNKNOWN [Suspect]
     Active Substance: IMATINIB
     Dosage: AFTER 1 MONTH, DOSE REDUCED
     Route: 065
     Dates: start: 2019
  2. IMATINIB, UNKNOWN [Suspect]
     Active Substance: IMATINIB
     Indication: MYELOPROLIFERATIVE NEOPLASM
     Route: 065
     Dates: start: 20190819
  3. IMATINIB, UNKNOWN [Suspect]
     Active Substance: IMATINIB
     Dosage: AFTER 1 MONTH, DOSE REDUCED
     Route: 065
     Dates: start: 2019

REACTIONS (2)
  - Osteonecrosis of jaw [Recovered/Resolved]
  - Condition aggravated [Recovered/Resolved]
